FAERS Safety Report 23398286 (Version 3)
Quarter: 2024Q1

REPORT INFORMATION
  Report Type: Spontaneous
  Country: US (occurrence: US)
  Receive Date: 20240112
  Receipt Date: 20240311
  Transmission Date: 20240410
  Serious: Yes (Hospitalization, Other)
  Sender: FDA-Public Use
  Company Number: US-BRISTOL-MYERS SQUIBB COMPANY-2024-006375

PATIENT
  Age: 70 Year
  Sex: Male

DRUGS (2)
  1. POMALYST [Suspect]
     Active Substance: POMALIDOMIDE
     Indication: Dementia
     Dosage: TAKE 1 CAPSULE BY MOUTH DAILY ON DAYS 1-21 WITH OR WITHOUT FOOD.
     Route: 048
     Dates: start: 20230213
  2. POMALYST [Suspect]
     Active Substance: POMALIDOMIDE
     Dosage: TAKE 1 CAPSULE BY MOUTH DAILY ON DAYS 1-21 WITH OR WITHOUT FOOD.
     Route: 048
     Dates: start: 20220916

REACTIONS (4)
  - Pneumonia [Not Recovered/Not Resolved]
  - Off label use [Unknown]
  - Influenza [Not Recovered/Not Resolved]
  - Cardiac disorder [Unknown]
